FAERS Safety Report 19058055 (Version 2)
Quarter: 2021Q2

REPORT INFORMATION
  Report Type: Spontaneous
  Country: FR (occurrence: FR)
  Receive Date: 20210325
  Receipt Date: 20210417
  Transmission Date: 20210717
  Serious: Yes (Hospitalization, Other)
  Sender: FDA-Public Use
  Company Number: FR-AMGEN-FRASP2021044561

PATIENT
  Age: 7 Month
  Sex: Female
  Weight: 2.98 kg

DRUGS (35)
  1. ZOPHREN [ONDANSETRON] [Concomitant]
     Active Substance: ONDANSETRON
     Indication: VOMITING
  2. BEPANTHEN [DEXPANTHENOL;DOMIPHEN BROMIDE] [Concomitant]
  3. METHYLPREDNISOLONE. [Concomitant]
     Active Substance: METHYLPREDNISOLONE
     Dosage: 6 MILLIGRAM
     Route: 037
     Dates: start: 20180723
  4. ZOPHREN [ONDANSETRON] [Concomitant]
     Active Substance: ONDANSETRON
     Indication: NAUSEA
     Dosage: 2 MILLIGRAM, TWICE A DAY, AS NECESSARY
  5. CYTARABINE. [Concomitant]
     Active Substance: CYTARABINE
     Dosage: 2.25 GRAM PER SQUARE METRE, BID, FOR 3 DAYS, 50 MG/M2/D
     Route: 042
     Dates: start: 20180731
  6. METHOTREXATE. [Concomitant]
     Active Substance: METHOTREXATE
     Dosage: 6 MILLIGRAM, QWK
     Route: 037
     Dates: start: 20180731
  7. PEGASPARGASE [Concomitant]
     Active Substance: PEGASPARGASE
     Dosage: 2500 IU INTERNATIONAL UNIT PER SQAURE METER
     Dates: start: 20180224
  8. MYLOTARG [LEVOFLOXACIN] [Concomitant]
     Dosage: 3 MILLIGRAM/SQ. METER
     Dates: start: 20180615
  9. ALBUMIN [Concomitant]
     Active Substance: ALBUMIN HUMAN
     Dosage: UNK
     Dates: start: 20180610
  10. FUNGIZONE [Concomitant]
     Active Substance: AMPHOTERICIN B
     Dosage: 1 MILLILITER, TID
  11. SPASFON?LYOC [Concomitant]
     Active Substance: PHLOROGLUCINOL
     Indication: ABDOMINAL PAIN
     Dosage: 1/4 TABLET, TWICE A DAY AS NECESSARY
  12. AMIKLIN [AMIKACIN] [Concomitant]
     Dosage: UNK
     Dates: start: 20180629
  13. RIVOTRIL [Concomitant]
     Active Substance: CLONAZEPAM
     Dosage: 0.02 MILLIGRAM/KILOGRAM
  14. BACTRIM [Concomitant]
     Active Substance: SULFAMETHOXAZOLE\TRIMETHOPRIM
     Dosage: 4 MILLILITER, TID
  15. ZYMA [Concomitant]
     Active Substance: PROBIOTICS NOS
     Dosage: 4 DROP, QD
  16. BLINATUMOMAB [Suspect]
     Active Substance: BLINATUMOMAB
     Dosage: 15 MICROGRAM/SQ. METER, QD
     Route: 042
     Dates: start: 20180612
  17. CYCLOPHOSPHAMIDE. [Concomitant]
     Active Substance: CYCLOPHOSPHAMIDE
  18. CYTARABINE. [Concomitant]
     Active Substance: CYTARABINE
     Dosage: 2.25 GRAM PER SQUARE METRE, BID, FOR 3 DAYS
     Dates: start: 20180224
  19. METHOTREXATE. [Concomitant]
     Active Substance: METHOTREXATE
     Dosage: 6 MILLIGRAM
  20. DEPO?MEDROL [Concomitant]
     Active Substance: METHYLPREDNISOLONE ACETATE
     Dosage: 6 MILLIGRAM
     Dates: start: 20180224
  21. PRIVIGEN [Concomitant]
     Active Substance: HUMAN IMMUNOGLOBULIN G
     Dosage: 0.4 GRAM PER KILOGRAM
     Dates: start: 20180626
  22. VANCOMYCIN [Concomitant]
     Active Substance: VANCOMYCIN
     Dosage: UNK
     Dates: start: 20180606
  23. MERONEM [Concomitant]
     Active Substance: MEROPENEM
     Dosage: UNK
     Dates: start: 2018
  24. AMSIDINE [Concomitant]
     Dosage: 75 MILLIGRAM/SQ. METER, QD, FOR 3 DAYS
  25. GEMTUZUMAB OZOGAMICIN [Concomitant]
     Active Substance: GEMTUZUMAB OZOGAMICIN
     Dosage: 3 MILLIGRAM/SQ. METER
  26. TIENAM [Concomitant]
     Active Substance: CILASTATIN SODIUM\IMIPENEM
     Dosage: UNK
     Dates: start: 20180629
  27. ALBUMIN [Concomitant]
     Active Substance: ALBUMIN HUMAN
     Dosage: UNK
     Dates: start: 20180607
  28. DOLIPRANE [Concomitant]
     Active Substance: ACETAMINOPHEN
     Indication: PAIN
     Dosage: 1 DOSE/WEIGHT (7 KG) EVERY 6 HOURS
  29. BLINATUMOMAB [Suspect]
     Active Substance: BLINATUMOMAB
     Indication: ACUTE LEUKAEMIA
     Dosage: 5 MICROGRAM/SQ. METER, QD, FOR 7 DAYS
     Route: 042
     Dates: start: 20180605
  30. PREDNISONE. [Concomitant]
     Active Substance: PREDNISONE
     Dosage: 60 MILLIGRAM/SQ. METER, QD
     Dates: start: 20180224
  31. TAZOCILLINE [Concomitant]
     Active Substance: PIPERACILLIN SODIUM\TAZOBACTAM SODIUM
     Dosage: UNK
     Dates: start: 20180604
  32. ALBUMIN [Concomitant]
     Active Substance: ALBUMIN HUMAN
     Dosage: UNK
     Dates: start: 20180609
  33. CYTARABINE. [Concomitant]
     Active Substance: CYTARABINE
     Dosage: 2.25 GRAM PER SQUARE METRE, BID, FOR 3 DAYS, 50 MG/M2/D
     Route: 037
     Dates: start: 20180723
  34. 6?MERCAPTOPURINE MONOHYDRATE [Concomitant]
     Active Substance: MERCAPTOPURINE
  35. AMBISOME [Concomitant]
     Active Substance: AMPHOTERICIN B
     Dosage: 7 MILLIGRAM, Q3WK

REACTIONS (7)
  - C-reactive protein increased [Unknown]
  - Febrile convulsion [Recovered/Resolved]
  - Acute leukaemia [Unknown]
  - Off label use [Unknown]
  - Weight gain poor [Recovered/Resolved]
  - Therapeutic product effect incomplete [Unknown]
  - Device breakage [Unknown]

NARRATIVE: CASE EVENT DATE: 2018
